FAERS Safety Report 6408306-1 (Version None)
Quarter: 2009Q4

REPORT INFORMATION
  Report Type: 
  Country: None (occurrence: None)
  Receive Date: 20091021
  Receipt Date: 20091012
  Transmission Date: 20100525
  Serious: Yes (Hospitalization)
  Sender: FDA-Public Use
  Company Number: US-NOVOPROD-291603

PATIENT
  Sex: Female
  Weight: 44.898 kg

DRUGS (6)
  1. NOVOLOG [Suspect]
     Indication: TYPE 1 DIABETES MELLITUS
     Dosage: 50 IU, QD
     Route: 058
  2. LOPRESSOR [Concomitant]
     Indication: HYPERTENSION
     Dosage: 37.5, QID
  3. CLONIDINE [Concomitant]
     Indication: HYPERTENSION
     Dosage: .3, QW
     Route: 062
  4. CARDENE [Concomitant]
     Indication: HYPERTENSION
     Dosage: 60 MG, BID
  5. RAMPRIL [Concomitant]
     Indication: HYPERTENSION
     Dosage: 10 MG, BID
  6. ZOCOR [Concomitant]
     Indication: BLOOD CHOLESTEROL INCREASED
     Dosage: 10 MG, QD

REACTIONS (3)
  - BLOOD GLUCOSE INCREASED [None]
  - FLUID OVERLOAD [None]
  - INCORRECT STORAGE OF DRUG [None]
